FAERS Safety Report 21354884 (Version 6)
Quarter: 2023Q4

REPORT INFORMATION
  Report Type: Spontaneous
  Country: FR (occurrence: FR)
  Receive Date: 20220920
  Receipt Date: 20231031
  Transmission Date: 20240110
  Serious: Yes (Hospitalization, Other)
  Sender: FDA-Public Use
  Company Number: None

PATIENT
  Age: 8 Year
  Sex: Male
  Weight: 24 kg

DRUGS (2)
  1. BUSULFAN [Suspect]
     Active Substance: BUSULFAN
     Indication: Stem cell transplant
     Dosage: TOTAL DOSE
     Route: 042
     Dates: start: 202207, end: 202207
  2. ATIDARSAGENE AUTOTEMCEL [Suspect]
     Active Substance: ATIDARSAGENE AUTOTEMCEL
     Indication: Metachromatic leukodystrophy
     Dosage: 2 TO 10 X 10X6 CELLS/ML
     Route: 042
     Dates: start: 20220718, end: 20220718

REACTIONS (1)
  - Encephalitis [Not Recovered/Not Resolved]

NARRATIVE: CASE EVENT DATE: 20220828
